FAERS Safety Report 5985227-X (Version None)
Quarter: 2008Q4

REPORT INFORMATION
  Report Type: 
  Country: None (occurrence: None)
  Receive Date: 20081203
  Receipt Date: 20081121
  Transmission Date: 20090506
  Serious: Yes (Other)
  Sender: FDA-Public Use
  Company Number: TRP_05921_2008

PATIENT
  Sex: Female

DRUGS (3)
  1. RIBASPHERE [Suspect]
     Indication: HEPATITIS C
     Dosage: 800 MG
     Dates: start: 20080319
  2. PEGASYS [Suspect]
     Indication: HEPATITIS C
     Dosage: 180 MCG
     Dates: start: 20080319
  3. ZOLOFT [Concomitant]

REACTIONS (5)
  - COUGH [None]
  - FATIGUE [None]
  - HAEMANGIOMA OF LIVER [None]
  - PLATELET COUNT DECREASED [None]
  - WEIGHT DECREASED [None]
